FAERS Safety Report 8202795-8 (Version None)
Quarter: 2012Q1

REPORT INFORMATION
  Report Type: 
  Country: None (occurrence: None)
  Receive Date: 20120312
  Receipt Date: 20120312
  Transmission Date: 20120608
  Serious: Yes (Death)
  Sender: FDA-Public Use
  Company Number: None

PATIENT
  Age: 70 Year
  Sex: Female
  Weight: 723.02 kg

DRUGS (10)
  1. PERCOCET [Concomitant]
  2. FOSPHENYTOIN [Suspect]
     Indication: CONVULSION
     Dosage: 1,446.1MG
     Route: 042
     Dates: start: 20120127, end: 20120127
  3. FOSPHENYTOIN [Concomitant]
     Dosage: 1,446.1MG
     Route: 042
     Dates: start: 20120127, end: 20120127
  4. METOPROLOL TARTRATE [Concomitant]
     Route: 048
  5. PEPSID [Concomitant]
  6. FOLIC ACID [Concomitant]
     Route: 048
  7. FERROUS SULFATE TAB [Concomitant]
  8. PRAVASTATIN [Concomitant]
     Route: 048
  9. POTASSIUM CHLORIDE [Concomitant]
  10. CALCIUM CARBONATE [Concomitant]

REACTIONS (3)
  - CARDIO-RESPIRATORY ARREST [None]
  - GENERAL PHYSICAL HEALTH DETERIORATION [None]
  - OXYGEN SATURATION DECREASED [None]
